FAERS Safety Report 17631656 (Version 1)
Quarter: 2020Q2

REPORT INFORMATION
  Report Type: Spontaneous
  Country: US (occurrence: US)
  Receive Date: 20200406
  Receipt Date: 20200406
  Transmission Date: 20200713
  Serious: Yes (Other)
  Sender: FDA-Public Use
  Company Number: US-ACTELION-A-CH2020-203875

PATIENT
  Age: 44 Year
  Sex: Female

DRUGS (3)
  1. SILDENAFIL. [Concomitant]
     Active Substance: SILDENAFIL
     Indication: PULMONARY ARTERIAL HYPERTENSION
     Dosage: 20 MG, TID
  2. EPOPROSTENOL SODIUM. [Suspect]
     Active Substance: EPOPROSTENOL SODIUM
     Indication: PULMONARY ARTERIAL HYPERTENSION
     Dosage: 17 NG/KG, PER MIN
     Route: 042
  3. AMBRISENTAN [Concomitant]
     Active Substance: AMBRISENTAN
     Indication: PULMONARY ARTERIAL HYPERTENSION
     Dosage: 10 MG

REACTIONS (20)
  - Pulmonary arterial hypertension [Recovered/Resolved]
  - Musculoskeletal pain [Recovered/Resolved]
  - Gastrooesophageal reflux disease [Unknown]
  - Upper gastrointestinal haemorrhage [Unknown]
  - Right ventricular dysfunction [Recovered/Resolved]
  - Electrocardiogram ST segment depression [Recovered/Resolved]
  - Condition aggravated [Recovered/Resolved]
  - Coronary artery compression [Recovered/Resolved]
  - Annuloplasty [Unknown]
  - Lung transplant [Unknown]
  - Myocardial infarction [Recovered/Resolved]
  - Anaemia [Unknown]
  - Pulmonary embolism [Unknown]
  - Myocardial bridging [Recovered/Resolved]
  - Troponin increased [Recovered/Resolved]
  - Myocardial ischaemia [Recovered/Resolved]
  - Pulmonary artery dilatation [Recovered/Resolved]
  - Cardiac output decreased [Unknown]
  - Right ventricular hypertrophy [Recovered/Resolved]
  - Chest pain [Recovered/Resolved]
